FAERS Safety Report 17267971 (Version 1)
Quarter: 2020Q1

REPORT INFORMATION
  Report Type: Spontaneous
  Country: US (occurrence: US)
  Receive Date: 20191221
  Receipt Date: 20191221
  Transmission Date: 20200409
  Serious: No
  Sender: FDA-Public Use
  Company Number: None

PATIENT
  Age: 53 Year
  Sex: Female

DRUGS (1)
  1. TOBRAMYCIN IV 40MG/ML 30ML [Suspect]
     Active Substance: TOBRAMYCIN
     Dosage: OTHER
     Route: 042
     Dates: start: 201804, end: 201804

REACTIONS (2)
  - Deafness [None]
  - Dizziness [None]

NARRATIVE: CASE EVENT DATE: 20190204
